FAERS Safety Report 25963296 (Version 1)
Quarter: 2025Q4

REPORT INFORMATION
  Report Type: Spontaneous
  Country: US (occurrence: US)
  Receive Date: 20251027
  Receipt Date: 20251027
  Transmission Date: 20260118
  Serious: No
  Sender: BAYER HEALTHCARE LLC
  Company Number: US-BAYER-2025A141095

PATIENT
  Age: 71 Year
  Sex: Female

DRUGS (4)
  1. MIRALAX [Suspect]
     Active Substance: POLYETHYLENE GLYCOL 3350
     Indication: Gastrointestinal disorder
     Dosage: DISSOLVE 17 GR OF MIRALAX IN 6 ONZ OF WATER AND TAKE IT AT 5:30 PM EVERY DAY
     Route: 048
  2. MIRALAX [Suspect]
     Active Substance: POLYETHYLENE GLYCOL 3350
     Indication: Irritable bowel syndrome
  3. MIRTAZAPINE [Concomitant]
     Active Substance: MIRTAZAPINE
  4. GABAPENTIN [Concomitant]
     Active Substance: GABAPENTIN

REACTIONS (2)
  - Product use in unapproved indication [Recovering/Resolving]
  - Extra dose administered [None]
